FAERS Safety Report 8080158 (Version 2)
Quarter: 2013Q3

REPORT INFORMATION
  Report Type: Spontaneous
  Country: US (occurrence: US)
  Receive Date: 20110808
  Receipt Date: 20130904
  Transmission Date: 20140515
  Serious: Yes (Death)
  Sender: FDA-Public Use
  Company Number: US-GLAXOSMITHKLINE-A0886515A

PATIENT
  Age: 56 Year
  Sex: Female
  Weight: 110 kg

DRUGS (6)
  1. AVANDIA [Suspect]
     Indication: DIABETES MELLITUS
     Dosage: 8MG PER DAY
     Route: 048
     Dates: start: 20010320, end: 20081108
  2. AVANDAMET [Suspect]
     Indication: DIABETES MELLITUS
     Route: 048
  3. QUINAPRIL [Concomitant]
  4. METFORMIN [Concomitant]
  5. GLIPIZIDE [Concomitant]
  6. ZOCOR [Concomitant]

REACTIONS (5)
  - Pneumonia necrotising [Fatal]
  - Pneumonia aspiration [Fatal]
  - Arteriosclerosis [Unknown]
  - Left ventricular hypertrophy [Unknown]
  - Cardio-respiratory arrest [Fatal]
